FAERS Safety Report 22955831 (Version 2)
Quarter: 2023Q4

REPORT INFORMATION
  Report Type: Report from Study
  Country: PH (occurrence: PH)
  Receive Date: 20230919
  Receipt Date: 20231015
  Transmission Date: 20240110
  Serious: Yes (Death)
  Sender: FDA-Public Use
  Company Number: PH-BoehringerIngelheim-2023-BI-261674

PATIENT
  Age: 81 Year
  Sex: Female

DRUGS (1)
  1. OFEV [Suspect]
     Active Substance: NINTEDANIB
     Indication: Systemic sclerosis pulmonary
     Route: 048
     Dates: start: 20230818, end: 20230914

REACTIONS (3)
  - Interstitial lung disease [Fatal]
  - Chest pain [Unknown]
  - Drug ineffective [Unknown]
